FAERS Safety Report 5807669-5 (Version None)
Quarter: 2008Q3

REPORT INFORMATION
  Report Type: 
  Country: None (occurrence: None)
  Receive Date: 20080708
  Receipt Date: 20080703
  Transmission Date: 20090109
  Serious: Yes (Life-Threatening, Hospitalization, Other)
  Sender: FDA-Public Use
  Company Number: 2007SP000768

PATIENT
  Age: 61 Year
  Sex: Male
  Weight: 55 kg

DRUGS (10)
  1. TEMODAL [Suspect]
     Indication: ANAPLASTIC ASTROCYTOMA
     Dosage: 150 MG/M2; QD; PO, 150 MG/M2; QD; PO, 150 MG/M2; QD; PO
     Route: 048
     Dates: start: 20061009, end: 20061013
  2. TEMODAL [Suspect]
     Indication: RECURRENT CANCER
     Dosage: 150 MG/M2; QD; PO, 150 MG/M2; QD; PO, 150 MG/M2; QD; PO
     Route: 048
     Dates: start: 20061009, end: 20061013
  3. TEMODAL [Suspect]
     Indication: ANAPLASTIC ASTROCYTOMA
     Dosage: 150 MG/M2; QD; PO, 150 MG/M2; QD; PO, 150 MG/M2; QD; PO
     Route: 048
     Dates: start: 20061106, end: 20061110
  4. TEMODAL [Suspect]
     Indication: RECURRENT CANCER
     Dosage: 150 MG/M2; QD; PO, 150 MG/M2; QD; PO, 150 MG/M2; QD; PO
     Route: 048
     Dates: start: 20061106, end: 20061110
  5. TEMODAL [Suspect]
     Indication: ANAPLASTIC ASTROCYTOMA
     Dosage: 150 MG/M2; QD; PO, 150 MG/M2; QD; PO, 150 MG/M2; QD; PO
     Route: 048
     Dates: start: 20061204, end: 20061208
  6. TEMODAL [Suspect]
     Indication: RECURRENT CANCER
     Dosage: 150 MG/M2; QD; PO, 150 MG/M2; QD; PO, 150 MG/M2; QD; PO
     Route: 048
     Dates: start: 20061204, end: 20061208
  7. DEPAKENE [Concomitant]
  8. DAONIL [Concomitant]
  9. GLIMICRON [Concomitant]
  10. ABILIT [Concomitant]

REACTIONS (5)
  - CARDIO-RESPIRATORY ARREST [None]
  - DISSEMINATED INTRAVASCULAR COAGULATION [None]
  - HEPATIC FAILURE [None]
  - SHOCK [None]
  - STAPHYLOCOCCAL INFECTION [None]
